FAERS Safety Report 9765732 (Version 1)
Quarter: 2013Q4

REPORT INFORMATION
  Report Type: Spontaneous
  Country: US (occurrence: US)
  Receive Date: 20131217
  Receipt Date: 20131217
  Transmission Date: 20140711
  Serious: Yes (Other)
  Sender: FDA-Public Use
  Company Number: US-JNJFOC-20131207619

PATIENT
  Age: 6 Decade
  Sex: Male

DRUGS (1)
  1. INVOKANA [Suspect]
     Indication: TYPE 2 DIABETES MELLITUS

REACTIONS (2)
  - Depression [Recovered/Resolved]
  - Anxiety [Recovered/Resolved]
